FAERS Safety Report 9128229 (Version 2)
Quarter: 2013Q1

REPORT INFORMATION
  Report Type: Spontaneous
  Country: US (occurrence: US)
  Receive Date: 20130228
  Receipt Date: 20130313
  Transmission Date: 20140127
  Serious: Yes (Other)
  Sender: FDA-Public Use
  Company Number: PHEH2013US004671

PATIENT
  Sex: Female

DRUGS (10)
  1. DIOVAN HCT [Suspect]
  2. LISINOPRIL [Suspect]
  3. PRILOSEC [Concomitant]
  4. LEVOTHYROXINE [Concomitant]
  5. K-DUR [Concomitant]
  6. CYMBALTA [Concomitant]
  7. MULTIVITAMINS [Concomitant]
  8. VITAMIN B-12 [Concomitant]
  9. VERAPAMIL [Concomitant]
  10. XANAX [Concomitant]

REACTIONS (2)
  - Intestinal perforation [Unknown]
  - Cough [Unknown]
